FAERS Safety Report 6583047-9 (Version None)
Quarter: 2010Q1

REPORT INFORMATION
  Report Type: 
  Country: None (occurrence: None)
  Receive Date: 20100212
  Receipt Date: 20100212
  Transmission Date: 20100710
  Serious: Yes (Hospitalization)
  Sender: FDA-Public Use
  Company Number: None

PATIENT
  Age: 89 Year
  Sex: Male
  Weight: 78 kg

DRUGS (3)
  1. WARFARIN SODIUM [Suspect]
     Indication: ATRIAL FIBRILLATION
     Dosage: 2 MG EVERY DAY PO
     Route: 048
     Dates: start: 20010501
  2. WARFARIN SODIUM [Suspect]
     Indication: SURGERY
     Dosage: 2 MG EVERY DAY PO
     Route: 048
     Dates: start: 20010501
  3. SALSALATE [Suspect]
     Indication: PAIN
     Dosage: 1500 MG BIS PO
     Route: 048
     Dates: start: 19970701, end: 20091031

REACTIONS (5)
  - ALCOHOL USE [None]
  - DIVERTICULUM [None]
  - GAIT DISTURBANCE [None]
  - HAEMOGLOBIN DECREASED [None]
  - INTERNATIONAL NORMALISED RATIO ABNORMAL [None]
